FAERS Safety Report 11624679 (Version 4)
Quarter: 2015Q4

REPORT INFORMATION
  Report Type: Spontaneous
  Country: GB (occurrence: GB)
  Receive Date: 20151013
  Receipt Date: 20151015
  Transmission Date: 20160304
  Serious: Yes (Hospitalization)
  Sender: FDA-Public Use
  Company Number: GB-SA-2015SA158719

PATIENT
  Age: 69 Year
  Sex: Female

DRUGS (18)
  1. BISOPROLOL [Concomitant]
     Active Substance: BISOPROLOL
  2. GABAPENTIN. [Concomitant]
     Active Substance: GABAPENTIN
  3. SENNA [Concomitant]
     Active Substance: SENNA LEAF\SENNOSIDES\SENNOSIDES A AND B
     Dosage: 1-2 AT NIGHT.
  4. CYCLIZINE [Concomitant]
     Active Substance: CYCLIZINE
  5. ORAMORPH [Concomitant]
     Active Substance: MORPHINE SULFATE
     Dosage: 10MG/5ML 2.5ML EVERY 4 TO 6 HOURLY
  6. FOLIC ACID. [Concomitant]
     Active Substance: FOLIC ACID
     Dosage: EXCEPT TUESDAY.
  7. DOCUSATE [Concomitant]
     Active Substance: DOCUSATE
  8. CETIRIZINE [Concomitant]
     Active Substance: CETIRIZINE HYDROCHLORIDE
  9. METHOTREXATE [Suspect]
     Active Substance: METHOTREXATE
     Dosage: ON A TUESDAY AT NIGHT.
     Route: 048
  10. MST CONTINUS [Concomitant]
     Active Substance: MORPHINE SULFATE
  11. OMEPRAZOLE. [Concomitant]
     Active Substance: OMEPRAZOLE
  12. SIMVASTATIN. [Concomitant]
     Active Substance: SIMVASTATIN
     Dosage: AT NIGHT
     Dates: start: 20150812
  13. ADCAL-D3 [Concomitant]
     Active Substance: CALCIUM CARBONATE\CHOLECALCIFEROL
     Dosage: COLECALCIFEROL 400UNIT / CALCIUM CARBONATE 1.5G, LEMON
  14. E45 [Concomitant]
     Active Substance: LANOLIN\LIGHT MINERAL OIL\PARAFFIN
     Dosage: AS DIRECTED
  15. LEVETIRACETAM. [Concomitant]
     Active Substance: LEVETIRACETAM
     Dosage: LEVETIRACETAM 250MG ONCE DAILY
  16. PARACETAMOL [Concomitant]
     Active Substance: ACETAMINOPHEN
  17. LEFLUNOMIDE. [Suspect]
     Active Substance: LEFLUNOMIDE
     Indication: RHEUMATOID ARTHRITIS
     Route: 065
  18. NITROFURANTOIN. [Concomitant]
     Active Substance: NITROFURANTOIN
     Dates: start: 20150901

REACTIONS (2)
  - Status epilepticus [Unknown]
  - Posterior reversible encephalopathy syndrome [Recovering/Resolving]

NARRATIVE: CASE EVENT DATE: 20150916
